FAERS Safety Report 22374549 (Version 1)
Quarter: 2023Q2

REPORT INFORMATION
  Report Type: Spontaneous
  Country: LT (occurrence: None)
  Receive Date: 20230526
  Receipt Date: 20230526
  Transmission Date: 20230722
  Serious: Yes (Life-Threatening, Hospitalization)
  Sender: FDA-Public Use
  Company Number: 2023A123079

PATIENT
  Age: 48 Year
  Sex: Female

DRUGS (5)
  1. QUETIAPINE [Suspect]
     Active Substance: QUETIAPINE
     Route: 048
  2. FENTANYL [Suspect]
     Active Substance: FENTANYL
  3. TRAMADOL [Suspect]
     Active Substance: TRAMADOL
  4. ALPRAZOLAM [Suspect]
     Active Substance: ALPRAZOLAM
  5. MIRTAZAPINE [Suspect]
     Active Substance: MIRTAZAPINE

REACTIONS (8)
  - Overdose [Unknown]
  - Cyanosis [Unknown]
  - Respiratory failure [Unknown]
  - Miosis [Unknown]
  - Stupor [Unknown]
  - Vomiting [Unknown]
  - Dysphagia [Unknown]
  - Somnolence [Unknown]
